FAERS Safety Report 10568210 (Version 1)
Quarter: 2014Q4

REPORT INFORMATION
  Report Type: Spontaneous
  Country: US (occurrence: None)
  Receive Date: 20141030
  Receipt Date: 20141030
  Transmission Date: 20150529
  Serious: Yes (Other)
  Sender: FDA-Public Use
  Company Number: US-BIOTEST-T 736/14

PATIENT
  Age: 48 Year
  Sex: Female

DRUGS (11)
  1. BIVIGAM [Suspect]
     Active Substance: HUMAN IMMUNOGLOBULIN G
     Indication: COMBINED IMMUNODEFICIENCY
     Dosage: PRIOR DOSE ON 17 SEP 2014, INTRAVENOUS
     Route: 042
     Dates: start: 20140923, end: 20140923
  2. CLARITIN [Suspect]
     Active Substance: LORATADINE
  3. SEROQUEL [Concomitant]
     Active Substance: QUETIAPINE FUMARATE
  4. CIPROFLOXACIN. [Concomitant]
     Active Substance: CIPROFLOXACIN
  5. ALBUTEROL. [Concomitant]
     Active Substance: ALBUTEROL
  6. ADVAIR HFA [Suspect]
     Active Substance: FLUTICASONE PROPIONATE\SALMETEROL XINAFOATE
  7. TRAMADOL [Concomitant]
     Active Substance: TRAMADOL
  8. SYNAGIS [Concomitant]
     Active Substance: PALIVIZUMAB
  9. AMTOBOPTOC EYE [Concomitant]
  10. METHOTREXATE [Concomitant]
     Active Substance: METHOTREXATE
  11. CYMBALTA [Suspect]
     Active Substance: DULOXETINE HYDROCHLORIDE

REACTIONS (5)
  - Myalgia [None]
  - Nausea [None]
  - Vomiting [None]
  - Chills [None]
  - Headache [None]

NARRATIVE: CASE EVENT DATE: 20140917
